FAERS Safety Report 20139978 (Version 1)
Quarter: 2021Q4

REPORT INFORMATION
  Report Type: Spontaneous
  Country: CN (occurrence: None)
  Receive Date: 20211202
  Receipt Date: 20211202
  Transmission Date: 20220303
  Serious: Yes (Hospitalization)
  Sender: FDA-Public Use
  Company Number: 2021A844240

PATIENT
  Age: 75 Year
  Sex: Female
  Weight: 55 kg

DRUGS (1)
  1. DAPAGLIFLOZIN [Suspect]
     Active Substance: DAPAGLIFLOZIN
     Indication: Diabetes mellitus
     Route: 048
     Dates: start: 20210801, end: 20211116

REACTIONS (2)
  - Vulvovaginal pruritus [Recovering/Resolving]
  - Urinary tract infection [Recovering/Resolving]

NARRATIVE: CASE EVENT DATE: 20211116
